FAERS Safety Report 13418733 (Version 1)
Quarter: 2017Q2

REPORT INFORMATION
  Report Type: Spontaneous
  Country: US (occurrence: US)
  Receive Date: 20170406
  Receipt Date: 20170406
  Transmission Date: 20170830
  Serious: Yes (Death)
  Sender: FDA-Public Use
  Company Number: US-ASTRAZENECA-2017SE34750

PATIENT
  Age: 70 Year
  Sex: Male

DRUGS (4)
  1. ASPIRIN. [Concomitant]
     Active Substance: ASPIRIN
     Indication: ACUTE MYOCARDIAL INFARCTION
     Route: 048
     Dates: start: 201703, end: 201703
  2. ANGIOMAXX [Concomitant]
     Dosage: ONCE/SINGLE ADMINISTRATION
     Route: 042
     Dates: start: 201703, end: 201703
  3. BRILINTA [Suspect]
     Active Substance: TICAGRELOR
     Indication: ACUTE MYOCARDIAL INFARCTION
     Dosage: 180.0MG ONCE/SINGLE ADMINISTRATION
     Route: 048
     Dates: start: 201703, end: 201703
  4. BRILINTA [Suspect]
     Active Substance: TICAGRELOR
     Indication: ACUTE MYOCARDIAL INFARCTION
     Route: 048
     Dates: start: 201703, end: 201703

REACTIONS (4)
  - Pulmonary alveolar haemorrhage [Fatal]
  - Condition aggravated [Fatal]
  - Oxygen saturation decreased [Fatal]
  - Pulmonary function test decreased [Fatal]

NARRATIVE: CASE EVENT DATE: 201703
